FAERS Safety Report 14246238 (Version 2)
Quarter: 2018Q1

REPORT INFORMATION
  Report Type: Spontaneous
  Country: JP (occurrence: JP)
  Receive Date: 20171204
  Receipt Date: 20180102
  Transmission Date: 20180508
  Serious: Yes (Other)
  Sender: FDA-Public Use
  Company Number: JP-ROCHE-2033053

PATIENT
  Age: 67 Year
  Sex: Male

DRUGS (3)
  1. LUCENTIS [Suspect]
     Active Substance: RANIBIZUMAB
     Indication: DIABETIC RETINAL OEDEMA
     Route: 031
  2. INSULIN ASPART [Concomitant]
     Active Substance: INSULIN ASPART
     Indication: PRODUCT USED FOR UNKNOWN INDICATION
     Dosage: TID (8 UNITS IN THE MORNING, 4 AT NOON, 6 AT NIGHT)
     Route: 065
  3. INSULIN DEGLUDEC [Concomitant]
     Active Substance: INSULIN DEGLUDEC
     Indication: PRODUCT USED FOR UNKNOWN INDICATION
     Dosage: 10 UNITS, QD (IN THE MORNING)
     Route: 065

REACTIONS (6)
  - Corneal oedema [Recovering/Resolving]
  - Drug resistance [Recovering/Resolving]
  - Diabetic retinal oedema [Unknown]
  - Eye inflammation [Recovering/Resolving]
  - Conjunctival haemorrhage [Recovering/Resolving]
  - Visual acuity reduced [Recovering/Resolving]
